FAERS Safety Report 21985096 (Version 1)
Quarter: 2023Q1

REPORT INFORMATION
  Report Type: Spontaneous
  Country: FR (occurrence: FR)
  Receive Date: 20230213
  Receipt Date: 20230213
  Transmission Date: 20230417
  Serious: Yes (Life-Threatening, Hospitalization)
  Sender: FDA-Public Use
  Company Number: FR-GLAXOSMITHKLINE-FR2022083443

PATIENT
  Age: 14 Year
  Sex: Male
  Weight: 97 kg

DRUGS (6)
  1. NAPROXEN [Suspect]
     Active Substance: NAPROXEN
     Indication: Dyspnoea
     Route: 050
     Dates: start: 20220426, end: 20220510
  2. NAPROXEN [Suspect]
     Active Substance: NAPROXEN
     Route: 050
     Dates: start: 20220411, end: 20220413
  3. NAPROXEN [Suspect]
     Active Substance: NAPROXEN
     Dates: start: 20220511, end: 20220513
  4. BACTRIM [Concomitant]
     Active Substance: SULFAMETHOXAZOLE\TRIMETHOPRIM
     Indication: Infection prophylaxis
  5. SYMBICORT [Concomitant]
     Active Substance: BUDESONIDE\FORMOTEROL FUMARATE DIHYDRATE
     Indication: Product used for unknown indication
  6. ACETAMINOPHEN [Concomitant]
     Active Substance: ACETAMINOPHEN
     Indication: Headache
     Dates: start: 20220521

REACTIONS (1)
  - Cerebral haemorrhage [Not Recovered/Not Resolved]

NARRATIVE: CASE EVENT DATE: 20220525
